FAERS Safety Report 6063255-6 (Version None)
Quarter: 2009Q1

REPORT INFORMATION
  Report Type: 
  Country: None (occurrence: None)
  Receive Date: 20090203
  Receipt Date: 20090122
  Transmission Date: 20090719
  Serious: Yes (Death, Hospitalization)
  Sender: FDA-Public Use
  Company Number: BE-ROCHE-581166

PATIENT
  Sex: Male
  Weight: 78 kg

DRUGS (6)
  1. MYCOPHENOLATE MOFETIL [Suspect]
     Indication: ANTI-NEUTROPHIL CYTOPLASMIC ANTIBODY POSITIVE VASCULITIS
     Dosage: TOTAL DAILY DOSE PER PRTOCOL.
     Route: 065
     Dates: start: 20080702
  2. OMEPRAZOLE [Concomitant]
  3. NAHCO3 [Concomitant]
     Dosage: DOSAGE REGIMEN REPORTED AS: 2X 3 GRAMS PER DAY.
  4. METHYLPREDNISOLONE [Concomitant]
  5. ALLOPURINOL [Concomitant]
  6. NASONEX [Concomitant]
     Dosage: DOSAGE REGIMEN: 2X2 PUFFS PER DAY.

REACTIONS (4)
  - ASPERGILLOSIS [None]
  - LUNG INFILTRATION [None]
  - PNEUMOTHORAX [None]
  - RENAL FAILURE [None]
